FAERS Safety Report 6532072-2 (Version None)
Quarter: 2010Q1

REPORT INFORMATION
  Report Type: 
  Country: None (occurrence: None)
  Receive Date: 20100108
  Receipt Date: 20091230
  Transmission Date: 20100710
  Serious: Yes (Hospitalization, Other)
  Sender: FDA-Public Use
  Company Number: GXKR2009GB02364

PATIENT
  Age: 56 Year
  Sex: Male

DRUGS (23)
  1. FUROSEMIDE (NGX) [Suspect]
     Dosage: 40 MG, UNK
     Route: 048
     Dates: start: 20090113, end: 20090122
  2. RAMIPRIL [Interacting]
     Dosage: 1.25 MG, UNK
     Route: 048
     Dates: start: 20090113, end: 20090122
  3. AMINOPHYLLINE [Concomitant]
     Route: 065
  4. ACETYLSALICYLIC ACID [Concomitant]
     Dosage: 75 MG, UNK
     Route: 048
  5. EPILIM CHRONO [Concomitant]
     Dosage: 500 MG, QID
     Route: 048
  6. FUROSEMIDE [Concomitant]
     Dosage: 40 MG, UNK
  7. IPRATROPIUM [Concomitant]
     Dosage: 500 UG, QID
     Route: 065
  8. ISOSORBIDE MONONITRATE [Concomitant]
     Route: 065
  9. LACTULOSE [Concomitant]
     Dosage: 15 ML, UNK
     Route: 048
  10. LIQUID PARAFFIN-POLYETHYLENE [Concomitant]
     Dosage: 1 DF, PRN
     Route: 061
  11. LORAZEPAM [Concomitant]
     Dosage: 0.5 MG, PRN
  12. MONTELUKAST SODIUM [Concomitant]
     Dosage: 10 MG, QD
     Route: 046
  13. PARACETAMOL [Concomitant]
     Dosage: 500 MG, PRN
     Route: 065
  14. PREDNISOLONE [Concomitant]
     Dosage: 10 MG, QD
  15. PREDNISOLONE [Concomitant]
     Dosage: 5 MG, QID
     Route: 048
  16. QUETIAPINE FUMARATE [Concomitant]
     Dosage: 100 MG, UNK
     Route: 048
  17. QUETIAPINE FUMARATE [Concomitant]
     Dosage: 150 MG, BID
     Route: 048
  18. QUETIAPINE FUMARATE [Concomitant]
     Dosage: 200 MG, BID
     Route: 048
  19. ALBUTEROL [Concomitant]
     Dosage: 5 MG, PRN
  20. SENNA [Concomitant]
     Dosage: 7.5 MG, QID
  21. FLUTICASONE PROPIONATE W/SALMETEROL XINAFOATE [Concomitant]
     Dosage: 2 DF, BID
  22. SULPIRIDE [Concomitant]
     Dosage: 200 MG, BID
     Route: 048
  23. THEOPHYLLINE [Concomitant]
     Dosage: 200 MG, BID

REACTIONS (2)
  - BLADDER CATHETERISATION [None]
  - RENAL FAILURE ACUTE [None]
